FAERS Safety Report 19577885 (Version 5)
Quarter: 2022Q1

REPORT INFORMATION
  Report Type: Report from Study
  Country: US (occurrence: US)
  Receive Date: 20210719
  Receipt Date: 20220228
  Transmission Date: 20220423
  Serious: No
  Sender: FDA-Public Use
  Company Number: NVSC2021US157275

PATIENT
  Sex: Female

DRUGS (3)
  1. MAYZENT [Suspect]
     Active Substance: SIPONIMOD
     Indication: Product used for unknown indication
     Dosage: 2 MG, QD
     Route: 048
     Dates: start: 20210607
  2. MAYZENT [Suspect]
     Active Substance: SIPONIMOD
     Dosage: 2 MG, QD
     Route: 048
  3. MAYZENT [Suspect]
     Active Substance: SIPONIMOD
     Dosage: 2 MG, QD
     Route: 048

REACTIONS (6)
  - Abdominal discomfort [Unknown]
  - Dyspnoea [Unknown]
  - Illness [Unknown]
  - Fall [Unknown]
  - Headache [Unknown]
  - Product dose omission issue [Unknown]
